FAERS Safety Report 7177004-1 (Version None)
Quarter: 2010Q4

REPORT INFORMATION
  Report Type: 
  Country: None (occurrence: None)
  Receive Date: 20101220
  Receipt Date: 20101005
  Transmission Date: 20110411
  Serious: No
  Sender: FDA-Public Use
  Company Number: US-ABBOTT-10P-163-0675887-00

PATIENT
  Sex: Male
  Weight: 95.34 kg

DRUGS (4)
  1. ADVICOR [Suspect]
     Indication: PRODUCT USED FOR UNKNOWN INDICATION
     Dates: end: 20100901
  2. SIMCOR [Suspect]
     Indication: BLOOD CHOLESTEROL
     Dosage: DAILY AT BED TIME
     Dates: start: 20100901
  3. ASPIRIN [Concomitant]
     Indication: PRODUCT USED FOR UNKNOWN INDICATION
     Dosage: AT BED TIME (INCONSISTENTLY)
  4. ALLOPURINOL [Concomitant]
     Indication: PRODUCT USED FOR UNKNOWN INDICATION

REACTIONS (3)
  - FEELING HOT [None]
  - FLUSHING [None]
  - RASH ERYTHEMATOUS [None]
